FAERS Safety Report 13895019 (Version 1)
Quarter: 2017Q3

REPORT INFORMATION
  Report Type: Report from Study
  Country: None (occurrence: US)
  Receive Date: 20170823
  Receipt Date: 20170823
  Transmission Date: 20171127
  Serious: No
  Sender: FDA-Public Use
  Company Number: US-SWEDISH ORPHAN INTERNATIONAL AB-2016US0788

PATIENT
  Sex: Male

DRUGS (1)
  1. KINERET [Suspect]
     Active Substance: ANAKINRA
     Indication: PERICARDITIS
     Dosage: PATIENT HAD KINERET FOR A TOTAL OF 6 DOSES (37 MG DAILY).
     Route: 058
     Dates: start: 20160824, end: 20160927

REACTIONS (4)
  - Pyrexia [Unknown]
  - Injection site rash [Unknown]
  - Nausea [Unknown]
  - Infection [Unknown]

NARRATIVE: CASE EVENT DATE: 2016
